FAERS Safety Report 8426024-5 (Version None)
Quarter: 2012Q2

REPORT INFORMATION
  Report Type: 
  Country: None (occurrence: None)
  Receive Date: 20120611
  Receipt Date: 20120529
  Transmission Date: 20120825
  Serious: Yes (Death, Hospitalization)
  Sender: FDA-Public Use
  Company Number: ES-CELGENEUS-144-21880-12022334

PATIENT
  Sex: Female

DRUGS (6)
  1. DEXAMETHASONE [Suspect]
     Indication: MULTIPLE MYELOMA
     Route: 048
     Dates: start: 20110524, end: 20110620
  2. DEXAMETHASONE [Suspect]
     Route: 048
     Dates: start: 20110621, end: 20110711
  3. HEPARIN [Concomitant]
     Indication: PROPHYLAXIS
     Route: 065
  4. HEPARIN [Concomitant]
     Indication: ANTICOAGULANT THERAPY
     Route: 065
  5. REVLIMID [Suspect]
     Dosage: 25 MILLIGRAM
     Route: 048
     Dates: start: 20110621, end: 20110710
  6. REVLIMID [Suspect]
     Indication: MULTIPLE MYELOMA
     Dosage: 25 MILLIGRAM
     Route: 048
     Dates: start: 20110524

REACTIONS (1)
  - SEPTIC SHOCK [None]
